FAERS Safety Report 11743533 (Version 8)
Quarter: 2017Q1

REPORT INFORMATION
  Report Type: Spontaneous
  Country: US (occurrence: US)
  Receive Date: 20151116
  Receipt Date: 20170321
  Transmission Date: 20170428
  Serious: Yes (Congenital Anomaly, Other)
  Sender: FDA-Public Use
  Company Number: PHEH2015US023654

PATIENT
  Sex: Female

DRUGS (2)
  1. ZOFRAN [Suspect]
     Active Substance: ONDANSETRON HYDROCHLORIDE
     Indication: FOETAL EXPOSURE DURING PREGNANCY
     Dosage: MOTHER^S DOSE: 4 MG, Q6H
     Route: 064
  2. ONDANSETRON [Suspect]
     Active Substance: ONDANSETRON
     Indication: FOETAL EXPOSURE DURING PREGNANCY
     Route: 064

REACTIONS (24)
  - Anhedonia [Unknown]
  - Emotional distress [Unknown]
  - Anxiety [Unknown]
  - Atrial septal defect [Unknown]
  - Cardiomegaly [Unknown]
  - Rhinorrhoea [Unknown]
  - Multiple congenital abnormalities [Unknown]
  - Cardiac septal defect [Unknown]
  - Dyspnoea [Unknown]
  - Chest pain [Unknown]
  - Injury [Unknown]
  - Upper respiratory tract infection [Unknown]
  - Body tinea [Unknown]
  - Foetal exposure during pregnancy [Unknown]
  - Congenital anomaly [Unknown]
  - Heart disease congenital [Unknown]
  - Pain [Unknown]
  - Nasal congestion [Unknown]
  - Bronchitis [Unknown]
  - Otitis media acute [Unknown]
  - Right ventricular enlargement [Unknown]
  - Cough [Unknown]
  - Cardiac murmur [Unknown]
  - Gastrooesophageal reflux disease [Unknown]
